FAERS Safety Report 25323037 (Version 1)
Quarter: 2025Q2

REPORT INFORMATION
  Report Type: Spontaneous
  Country: US (occurrence: US)
  Receive Date: 20250516
  Receipt Date: 20250516
  Transmission Date: 20250717
  Serious: Yes (Hospitalization)
  Sender: HETERO
  Company Number: US-HETERO-HET2025US02308

PATIENT
  Age: 16 Year
  Sex: Female

DRUGS (1)
  1. LISINOPRIL [Suspect]
     Active Substance: LISINOPRIL
     Indication: Product used for unknown indication
     Route: 048

REACTIONS (3)
  - Suicidal ideation [Unknown]
  - Anxiety [Unknown]
  - Intentional overdose [Unknown]
